FAERS Safety Report 11149142 (Version 1)
Quarter: 2015Q2

REPORT INFORMATION
  Report Type: Spontaneous
  Country: BR (occurrence: BR)
  Receive Date: 20150529
  Receipt Date: 20150529
  Transmission Date: 20150821
  Serious: Yes (Hospitalization, Other)
  Sender: FDA-Public Use
  Company Number: BR-GLAXOSMITHKLINE-BR2015GSK072795

PATIENT
  Age: 49 Year
  Sex: Female

DRUGS (3)
  1. INFLUENZA VACCINE [Suspect]
     Active Substance: INFLUENZA VIRUS VACCINE
     Indication: PROPHYLAXIS
     Route: 065
  2. XENICAL [Suspect]
     Active Substance: ORLISTAT
     Indication: PRODUCT USED FOR UNKNOWN INDICATION
     Dosage: 2 CAPSULE, UNK
     Route: 048
     Dates: start: 1991, end: 1993
  3. METFORMIN HYDROCHLORIDE. [Suspect]
     Active Substance: METFORMIN HYDROCHLORIDE
     Indication: PRODUCT USED FOR UNKNOWN INDICATION
     Dosage: UNK

REACTIONS (10)
  - Diarrhoea [Unknown]
  - Insomnia [Unknown]
  - Abdominal pain [Unknown]
  - Arterial disorder [Unknown]
  - Anaphylactic shock [Unknown]
  - Type 2 diabetes mellitus [Unknown]
  - Cough [Unknown]
  - Ill-defined disorder [Unknown]
  - Malaise [Unknown]
  - Weight increased [Unknown]
